FAERS Safety Report 7554791-1 (Version None)
Quarter: 2011Q2

REPORT INFORMATION
  Report Type: 
  Country: None (occurrence: None)
  Receive Date: 20110610
  Receipt Date: 20110526
  Transmission Date: 20111010
  Serious: Yes (Hospitalization)
  Sender: FDA-Public Use
  Company Number: RU-1185879

PATIENT
  Age: 62 Year
  Sex: Female

DRUGS (2)
  1. MAXIDEX [Suspect]
     Indication: POSTOPERATIVE CARE
     Dosage: 2 GTT QID OPHTHALMIC
     Route: 047
     Dates: start: 20110404
  2. DICLOFENAC SODIUM [Concomitant]

REACTIONS (7)
  - KERATITIS HERPETIC [None]
  - CORNEAL DYSTROPHY [None]
  - VISUAL ACUITY REDUCED [None]
  - CORNEAL EROSION [None]
  - FOREIGN BODY SENSATION IN EYES [None]
  - CORNEAL OPACITY [None]
  - EYE IRRITATION [None]
